FAERS Safety Report 25601776 (Version 1)
Quarter: 2025Q3

REPORT INFORMATION
  Report Type: Report from Study
  Country: US (occurrence: US)
  Receive Date: 20250724
  Receipt Date: 20250724
  Transmission Date: 20251020
  Serious: Yes (Other)
  Sender: ABBVIE
  Company Number: US-ABBVIE-6382217

PATIENT
  Age: 66 Year
  Sex: Female

DRUGS (1)
  1. SYNTHROID [Suspect]
     Active Substance: LEVOTHYROXINE SODIUM
     Indication: Product used for unknown indication
     Dosage: STRENGTH 50 MCG?END DATE 2025
     Route: 048
     Dates: start: 202505

REACTIONS (5)
  - Loss of consciousness [Unknown]
  - Hot flush [Unknown]
  - Muscle spasms [Unknown]
  - Temperature intolerance [Unknown]
  - Insomnia [Unknown]

NARRATIVE: CASE EVENT DATE: 20250610
